FAERS Safety Report 5765460-2 (Version None)
Quarter: 2008Q2

REPORT INFORMATION
  Report Type: 
  Country: None (occurrence: None)
  Receive Date: 20080611
  Receipt Date: 20080605
  Transmission Date: 20081010
  Serious: Yes (Hospitalization, Other)
  Sender: FDA-Public Use
  Company Number: A0731483A

PATIENT
  Age: 72 Year
  Sex: Female

DRUGS (2)
  1. RYTHMOL SR [Suspect]
     Indication: ATRIAL FIBRILLATION
     Dosage: 325MG PER DAY
     Route: 048
     Dates: end: 20080520
  2. LEVOXYL [Concomitant]

REACTIONS (3)
  - ADVERSE EVENT [None]
  - HAEMORRHAGE [None]
  - THERAPEUTIC RESPONSE DECREASED [None]
